FAERS Safety Report 20836518 (Version 1)
Quarter: 2022Q2

REPORT INFORMATION
  Report Type: Spontaneous
  Country: TW (occurrence: TW)
  Receive Date: 20220517
  Receipt Date: 20220517
  Transmission Date: 20220721
  Serious: Yes (Other)
  Sender: FDA-Public Use
  Company Number: TW-SUN PHARMACEUTICAL INDUSTRIES LTD-2022RR-336697

PATIENT
  Age: 58 Year
  Sex: Male

DRUGS (1)
  1. SUNITINIB [Suspect]
     Active Substance: SUNITINIB
     Indication: Clear cell renal cell carcinoma
     Dosage: 50 MILLIGRAM, DAILY
     Route: 065

REACTIONS (4)
  - Renal disorder [Unknown]
  - Proteinuria [Unknown]
  - Toxicity to various agents [Unknown]
  - Disease progression [Unknown]
